FAERS Safety Report 4754272-4 (Version None)
Quarter: 2005Q3

REPORT INFORMATION
  Report Type: 
  Country: None (occurrence: None)
  Receive Date: 20050825
  Receipt Date: 20050816
  Transmission Date: 20060218
  Serious: Yes (Hospitalization)
  Sender: FDA-Public Use
  Company Number: 2005-08-0890

PATIENT
  Age: 46 Year
  Sex: Female

DRUGS (17)
  1. PEG-INTRON [Suspect]
     Indication: HEPATITIS C
     Dosage: 96 QWK SC SUBCUTANEOUS
     Route: 058
     Dates: start: 20050104, end: 20050805
  2. RIBASPHERE [Suspect]
     Indication: HEPATITIS C
     Dosage: 800 MG QD ORAL
     Route: 048
     Dates: start: 20050104, end: 20050805
  3. ATENOLOL TABELTS [Concomitant]
  4. DOXEPIN HYDROCHLORIDE CAPSULES [Concomitant]
  5. DULCOLAX [Concomitant]
  6. FUROSEMIDE [Concomitant]
  7. HYDROCODONE BITARTRATE/ACETAMINOPHEN CAPSULES [Concomitant]
  8. NPH INSULIN PORK INJECTABLE SUSPENSION [Concomitant]
  9. MUCINEX (GUAIFENESIN) TABLETS [Concomitant]
  10. NEORAL [Concomitant]
  11. NOVOLIN N INJECTABLE SUSPENSION [Concomitant]
  12. PREDNISONE [Concomitant]
  13. PROMETHAZINE TABLETS [Concomitant]
  14. PROTONIX [Concomitant]
  15. SPIRONOLACTONE [Concomitant]
  16. LACTULOSE [Concomitant]
  17. LEVAQUIN [Concomitant]

REACTIONS (4)
  - CONSTIPATION [None]
  - DISEASE RECURRENCE [None]
  - HAEMORRHOIDS [None]
  - PNEUMONIA [None]
